FAERS Safety Report 21623220 (Version 9)
Quarter: 2025Q3

REPORT INFORMATION
  Report Type: Report from Study
  Country: KR (occurrence: KR)
  Receive Date: 20221121
  Receipt Date: 20250909
  Transmission Date: 20251020
  Serious: Yes (Hospitalization, Other)
  Sender: ABBVIE
  Company Number: KR-ABBVIE-4207538

PATIENT
  Age: 67 Year
  Sex: Male
  Weight: 119 kg

DRUGS (33)
  1. SKYRIZI [Suspect]
     Active Substance: RISANKIZUMAB-RZAA
     Indication: Psoriasis
     Route: 058
     Dates: start: 20201130, end: 20201130
  2. SKYRIZI [Suspect]
     Active Substance: RISANKIZUMAB-RZAA
     Route: 058
     Dates: start: 20210412, end: 20210412
  3. SKYRIZI [Suspect]
     Active Substance: RISANKIZUMAB-RZAA
     Route: 058
     Dates: start: 20220404, end: 20220404
  4. SKYRIZI [Suspect]
     Active Substance: RISANKIZUMAB-RZAA
     Route: 058
     Dates: start: 20211021, end: 20211021
  5. SKYRIZI [Suspect]
     Active Substance: RISANKIZUMAB-RZAA
     Route: 058
     Dates: start: 20210115, end: 20210115
  6. SKYRIZI [Suspect]
     Active Substance: RISANKIZUMAB-RZAA
     Route: 058
     Dates: start: 20210702, end: 20210702
  7. Cnu [Concomitant]
     Indication: Cholelithiasis
     Dosage: ONE DOSAGE FORM
     Route: 048
     Dates: start: 20220729
  8. Oxatin [Concomitant]
     Indication: Psoriasis
     Route: 048
     Dates: start: 20160102
  9. Spagerine [Concomitant]
     Indication: Chronic kidney disease
     Dosage: 200 MILLIGRAM
     Route: 048
     Dates: start: 20210121, end: 20211023
  10. Evoprim [Concomitant]
     Indication: Prophylaxis
     Dosage: 40 MILLIGRAM
     Route: 048
     Dates: start: 20200916, end: 20210604
  11. LINAGLIPTIN [Concomitant]
     Active Substance: LINAGLIPTIN
     Indication: Type 2 diabetes mellitus
     Route: 048
     Dates: start: 20190220
  12. Huons karos [Concomitant]
     Indication: Chronic kidney disease
     Route: 048
     Dates: start: 20190305, end: 20210123
  13. CARVEDILOL [Concomitant]
     Active Substance: CARVEDILOL
     Indication: Angina pectoris
     Route: 048
     Dates: start: 20150731
  14. AMLODIPINE CAMSYLATE [Concomitant]
     Active Substance: AMLODIPINE CAMSYLATE
     Indication: Hypertension
     Route: 048
     Dates: start: 20150731
  15. ATORVASTATIN CALCIUM\EZETIMIBE [Concomitant]
     Active Substance: ATORVASTATIN CALCIUM\EZETIMIBE
     Indication: Dyslipidaemia
     Dosage: UNIT DOSE 10/40 MG
     Route: 048
     Dates: start: 20170206
  16. Renalmin [Concomitant]
     Indication: Chronic kidney disease
     Dosage: ONE DOSAGE FORM
     Route: 048
     Dates: start: 20190325
  17. HERBALS [Concomitant]
     Active Substance: HERBALS
     Indication: Cholelithiasis
     Route: 048
     Dates: start: 20220518, end: 20220731
  18. ASPIRIN [Concomitant]
     Active Substance: ASPIRIN
     Indication: Coronary angioplasty
     Dosage: 100 MLLIGRAM
     Route: 048
     Dates: start: 20150731
  19. URSODIOL [Concomitant]
     Active Substance: URSODIOL
     Indication: Cholelithiasis
     Route: 048
     Dates: start: 20220518
  20. TESTOSTERONE UNDECANOATE [Concomitant]
     Active Substance: TESTOSTERONE UNDECANOATE
     Indication: Blood testosterone free decreased
     Route: 048
     Dates: start: 20200916, end: 20210604
  21. DIABEX [Concomitant]
     Active Substance: METFORMIN HYDROCHLORIDE
     Indication: Diabetic nephropathy
     Route: 048
     Dates: start: 20210616, end: 20210701
  22. DIABEX [Concomitant]
     Active Substance: METFORMIN HYDROCHLORIDE
     Indication: Diabetic nephropathy
     Route: 048
     Dates: start: 20210702
  23. Ganakhan [Concomitant]
     Indication: Gastrointestinal disorder prophylaxis
     Route: 048
     Dates: start: 20211027, end: 20211031
  24. MIRABEGRON [Concomitant]
     Active Substance: MIRABEGRON
     Indication: Chronic kidney disease
     Dosage: 50 MILLIGRAM
     Route: 048
     Dates: start: 20211020
  25. GLICLAZIDE [Concomitant]
     Active Substance: GLICLAZIDE
     Indication: Diabetic nephropathy
     Dates: start: 20190220, end: 20210604
  26. GLICLAZIDE [Concomitant]
     Active Substance: GLICLAZIDE
     Indication: Diabetic nephropathy
     Route: 048
  27. PLAVIX [Concomitant]
     Active Substance: CLOPIDOGREL BISULFATE
     Indication: Coronary angioplasty
     Dosage: 75 MILLIGRAM
     Route: 048
     Dates: start: 20150731
  28. NICORANDIL [Concomitant]
     Active Substance: NICORANDIL
     Indication: Angina pectoris
     Route: 048
     Dates: start: 20150731
  29. Hanmi urea [Concomitant]
     Indication: Psoriasis
     Dates: start: 20211021, end: 2022
  30. TRESIBA [Concomitant]
     Active Substance: INSULIN DEGLUDEC
     Indication: Diabetic nephropathy
     Dosage: 18 DOSAGE FORM
     Route: 058
     Dates: start: 20210616, end: 20210827
  31. NOVORAPID [Concomitant]
     Active Substance: INSULIN ASPART
     Indication: Diabetic nephropathy
     Route: 058
     Dates: start: 20210616, end: 20210827
  32. DESOXIMETASONE [Concomitant]
     Active Substance: DESOXIMETASONE
     Indication: Psoriasis
     Dates: start: 20211021
  33. RAMIPRIL [Concomitant]
     Active Substance: RAMIPRIL
     Indication: Hypertension
     Dosage: 2.5 MILLIGRAM
     Route: 048
     Dates: start: 20190308

REACTIONS (4)
  - Post procedural complication [Recovered/Resolved]
  - Cholecystitis chronic [Recovered/Resolved]
  - Cholecystitis acute [Recovered/Resolved]
  - Bile duct stone [Recovered/Resolved]

NARRATIVE: CASE EVENT DATE: 20220506
